FAERS Safety Report 13793112 (Version 1)
Quarter: 2017Q3

REPORT INFORMATION
  Report Type: Spontaneous
  Country: GB (occurrence: GB)
  Receive Date: 20170726
  Receipt Date: 20170726
  Transmission Date: 20171127
  Serious: Yes (Life-Threatening)
  Sender: FDA-Public Use
  Company Number: GB-PFIZER INC-1728871

PATIENT
  Age: 47 Year
  Sex: Male

DRUGS (7)
  1. METHOTREXATE SODIUM. [Suspect]
     Active Substance: METHOTREXATE SODIUM
     Indication: PSORIASIS
     Dosage: UP TO 12.5 MG
     Route: 048
     Dates: start: 20071110, end: 20110826
  2. SALBUTAMOL [Concomitant]
     Active Substance: ALBUTEROL
     Indication: ASTHMA
     Dosage: UNK
  3. EUMOVATE [Concomitant]
     Active Substance: CLOBETASONE BUTYRATE
     Indication: PSORIASIS
     Dosage: TWICE DAILY IF NEEDED
     Route: 061
     Dates: start: 20070914, end: 20110826
  4. DERMOL /01330701/ [Concomitant]
     Indication: PSORIASIS
     Dosage: USED DAILY;DERMOL WASH
     Route: 061
     Dates: start: 20070914, end: 20110826
  5. DOVOBET [Concomitant]
     Active Substance: BETAMETHASONE\CALCIPOTRIENE
     Indication: PSORIASIS
     Dosage: USED DAILY IF NEEDED
     Route: 061
     Dates: start: 20071210, end: 20110826
  6. LIGHT [Concomitant]
     Indication: PSORIASIS
     Dosage: UNK
  7. DOUBLEBASE [Concomitant]
     Active Substance: ISOPROPYL MYRISTATE\PARAFFIN
     Indication: PSORIASIS
     Dosage: AS NECESSARY
     Route: 061
     Dates: start: 20081024

REACTIONS (1)
  - Tonsil cancer [Recovered/Resolved]

NARRATIVE: CASE EVENT DATE: 20110826
